FAERS Safety Report 16004940 (Version 2)
Quarter: 2021Q1

REPORT INFORMATION
  Report Type: Spontaneous
  Country: US (occurrence: US)
  Receive Date: 20190226
  Receipt Date: 20210106
  Transmission Date: 20210419
  Serious: Yes (Other)
  Sender: FDA-Public Use
  Company Number: PHEH2019US008322

PATIENT
  Sex: Female

DRUGS (1)
  1. TASIGNA [Suspect]
     Active Substance: NILOTINIB
     Indication: CHRONIC MYELOID LEUKAEMIA
     Dosage: 150 MG, QD
     Route: 048
     Dates: start: 2015, end: 2018

REACTIONS (17)
  - Peripheral vascular disorder [Unknown]
  - Pain [Unknown]
  - Chronic obstructive pulmonary disease [Unknown]
  - Injury [Unknown]
  - Peripheral arterial occlusive disease [Unknown]
  - Anxiety [Unknown]
  - Syncope [Unknown]
  - Hypertension [Unknown]
  - Dyslipidaemia [Unknown]
  - Mesenteric artery stenosis [Unknown]
  - Myalgia [Unknown]
  - Myocardial infarction [Unknown]
  - Coronary artery disease [Unknown]
  - Gout [Unknown]
  - Arterial occlusive disease [Unknown]
  - Emotional distress [Unknown]
  - Dyspnoea exertional [Unknown]
